FAERS Safety Report 5769617-6 (Version None)
Quarter: 2008Q2

REPORT INFORMATION
  Report Type: 
  Country: None (occurrence: None)
  Receive Date: 20080612
  Receipt Date: 20080331
  Transmission Date: 20081010
  Serious: No
  Sender: FDA-Public Use
  Company Number: US-ABBOTT-08P-163-0445305-00

PATIENT
  Sex: Female
  Weight: 65.83 kg

DRUGS (3)
  1. HUMIRA [Suspect]
     Indication: RHEUMATOID ARTHRITIS
     Route: 058
     Dates: start: 20040101
  2. CODEINE SUL TAB [Concomitant]
     Indication: PAIN
     Route: 048
     Dates: start: 20071201
  3. ADVIL [Concomitant]
     Indication: PAIN
     Route: 048
     Dates: start: 20030101

REACTIONS (3)
  - FINGER DEFORMITY [None]
  - MUSCULOSKELETAL PAIN [None]
  - PAIN [None]
